FAERS Safety Report 8601163-4 (Version None)
Quarter: 2012Q3

REPORT INFORMATION
  Report Type: 
  Country: None (occurrence: None)
  Receive Date: 20120817
  Receipt Date: 20120814
  Transmission Date: 20120928
  Serious: Yes (Other)
  Sender: FDA-Public Use
  Company Number: PHHY2012AU069900

PATIENT
  Sex: Female

DRUGS (1)
  1. AFINITOR [Suspect]
     Indication: ASTROCYTOMA

REACTIONS (6)
  - INFECTION [None]
  - NEOPLASM PROGRESSION [None]
  - INJURY [None]
  - IMPAIRED HEALING [None]
  - INTRACRANIAL PRESSURE INCREASED [None]
  - NEOPLASM MALIGNANT [None]
